FAERS Safety Report 9320144 (Version 2)
Quarter: 2013Q2

REPORT INFORMATION
  Report Type: Spontaneous
  Country: US (occurrence: CA)
  Receive Date: 20130530
  Receipt Date: 20130611
  Transmission Date: 20140414
  Serious: No
  Sender: FDA-Public Use
  Company Number: US-ABBOTT-13P-163-1090318-00

PATIENT
  Age: 35 Year
  Sex: Male

DRUGS (5)
  1. HUMIRA [Suspect]
     Indication: CROHN^S DISEASE
     Route: 058
     Dates: start: 201102, end: 201302
  2. HUMIRA [Suspect]
     Indication: PSORIASIS
     Route: 058
     Dates: start: 201302
  3. HUMIRA [Suspect]
     Indication: UVEITIS
  4. METHOTREXATE [Concomitant]
     Indication: UVEITIS
     Dates: start: 201302
  5. ANTIDEPRESSANT [Concomitant]
     Indication: DEPRESSION

REACTIONS (2)
  - Uveitis [Not Recovered/Not Resolved]
  - Lymphadenopathy [Recovered/Resolved]
